FAERS Safety Report 6172131-X (Version None)
Quarter: 2009Q2

REPORT INFORMATION
  Report Type: 
  Country: None (occurrence: None)
  Receive Date: 20090429
  Receipt Date: 20090417
  Transmission Date: 20091009
  Serious: Yes (Other)
  Sender: FDA-Public Use
  Company Number: US-PFIZER INC-2009200494

PATIENT
  Sex: Female
  Weight: 62.132 kg

DRUGS (4)
  1. GLUCOTROL XL [Suspect]
     Indication: DIABETES MELLITUS
     Dosage: 5 MG, 1X/DAY
     Dates: start: 20000101
  2. METFORMIN [Concomitant]
     Dosage: 500 MG, 2X/DAY
  3. LIPITOR [Concomitant]
     Dosage: UNK
  4. THIAZIDES [Concomitant]
     Dosage: UNK

REACTIONS (1)
  - SKIN CANCER [None]
